FAERS Safety Report 19118243 (Version 1)
Quarter: 2021Q2

REPORT INFORMATION
  Report Type: Spontaneous
  Country: CA (occurrence: CA)
  Receive Date: 20210409
  Receipt Date: 20210409
  Transmission Date: 20210717
  Serious: Yes (Other)
  Sender: FDA-Public Use
  Company Number: CA-TEVA-2021-CA-1898482

PATIENT
  Age: 42 Year
  Sex: Female

DRUGS (1)
  1. TEVA ELETRIPTAN [Suspect]
     Active Substance: ELETRIPTAN
     Dates: start: 20210329

REACTIONS (10)
  - Mobility decreased [Recovering/Resolving]
  - Limb discomfort [Recovering/Resolving]
  - Dyspnoea [Recovering/Resolving]
  - Adverse drug reaction [Recovering/Resolving]
  - Vomiting [Recovering/Resolving]
  - Asthenia [Recovering/Resolving]
  - Migraine [Recovering/Resolving]
  - Choking sensation [Recovering/Resolving]
  - Nausea [Recovering/Resolving]
  - Fatigue [Not Recovered/Not Resolved]

NARRATIVE: CASE EVENT DATE: 20210329
